FAERS Safety Report 20503404 (Version 4)
Quarter: 2023Q2

REPORT INFORMATION
  Report Type: Report from Study
  Country: US (occurrence: US)
  Receive Date: 20220222
  Receipt Date: 20230403
  Transmission Date: 20230722
  Serious: Yes (Hospitalization, Other)
  Sender: FDA-Public Use
  Company Number: US-TAKEDA-2022TUS011916

PATIENT
  Age: 5 Year
  Sex: Male

DRUGS (12)
  1. TEDUGLUTIDE [Suspect]
     Active Substance: TEDUGLUTIDE
     Indication: Short-bowel syndrome
     Dosage: 0.6 MILLIGRAM, QD
     Route: 042
     Dates: start: 20210216, end: 20210409
  2. TEDUGLUTIDE [Suspect]
     Active Substance: TEDUGLUTIDE
     Indication: Short-bowel syndrome
     Dosage: 0.6 MILLIGRAM, QD
     Route: 042
     Dates: start: 20210216, end: 20210409
  3. TEDUGLUTIDE [Suspect]
     Active Substance: TEDUGLUTIDE
     Indication: Short-bowel syndrome
     Dosage: 0.6 MILLIGRAM, QD
     Route: 042
     Dates: start: 20210216, end: 20210409
  4. TEDUGLUTIDE [Suspect]
     Active Substance: TEDUGLUTIDE
     Indication: Short-bowel syndrome
     Dosage: 0.6 MILLIGRAM, QD
     Route: 042
     Dates: start: 20210216, end: 20210409
  5. ALBUTEROL [Concomitant]
     Active Substance: ALBUTEROL
     Indication: Bronchopulmonary dysplasia
     Dosage: 2.5 MICROGRAM
     Route: 055
     Dates: start: 20180626
  6. FAMOTIDINE [Concomitant]
     Active Substance: FAMOTIDINE
     Indication: Gastrooesophageal reflux disease
     Dosage: 10 MILLIGRAM, QD
     Route: 065
     Dates: start: 20181213
  7. SIMETHICONE (DIMETHICONE) [Concomitant]
     Active Substance: DIMETHICONE
     Indication: Prophylaxis
     Dosage: 40 MILLIGRAM, QID
     Route: 065
     Dates: start: 20190103
  8. ERGOCALCIFEROL [Concomitant]
     Active Substance: ERGOCALCIFEROL
     Indication: Vitamin supplementation
     Dosage: 1 MILLILITER, QD
     Route: 065
     Dates: start: 20190506
  9. VANCOMYCIN [Concomitant]
     Active Substance: VANCOMYCIN
     Indication: Bacteraemia
     Dosage: 17.50 MILLIGRAM/KILOGRAM, QID
     Route: 042
     Dates: start: 20220105, end: 20220108
  10. VANCOMYCIN [Concomitant]
     Active Substance: VANCOMYCIN
     Indication: Device related sepsis
     Dosage: 17.50 MILLIGRAM/KILOGRAM, QID
     Route: 042
     Dates: start: 20220201, end: 20220220
  11. MICAFUNGIN [Concomitant]
     Active Substance: MICAFUNGIN SODIUM
     Indication: Device related sepsis
     Dosage: 4 MILLIGRAM/KILOGRAM, TID
     Route: 042
     Dates: start: 20220105, end: 20220123
  12. CEFAZOLIN [Concomitant]
     Active Substance: CEFAZOLIN
     Indication: Device related sepsis
     Dosage: 450.0 MILLIGRAM, TID
     Route: 042
     Dates: start: 20211221, end: 20211221

REACTIONS (1)
  - Device related sepsis [Recovered/Resolved]

NARRATIVE: CASE EVENT DATE: 20211110
